FAERS Safety Report 8024176-2 (Version None)
Quarter: 2012Q1

REPORT INFORMATION
  Report Type: 
  Country: None (occurrence: None)
  Receive Date: 20120105
  Receipt Date: 20111229
  Transmission Date: 20120608
  Serious: Yes (Hospitalization)
  Sender: FDA-Public Use
  Company Number: CA-ABBOTT-11P-028-0874355-01

PATIENT
  Sex: Male

DRUGS (4)
  1. HUMIRA [Suspect]
     Indication: PSORIASIS
     Route: 058
     Dates: end: 20100524
  2. HUMIRA [Suspect]
     Route: 058
     Dates: start: 20110628
  3. HUMIRA [Concomitant]
     Indication: PSORIASIS
     Route: 058
     Dates: start: 20040101
  4. HUMIRA [Suspect]
     Route: 058
     Dates: start: 20110328

REACTIONS (1)
  - INTERVERTEBRAL DISC DEGENERATION [None]
